FAERS Safety Report 6754511-4 (Version None)
Quarter: 2010Q2

REPORT INFORMATION
  Report Type: 
  Country: None (occurrence: None)
  Receive Date: 20100603
  Receipt Date: 20100524
  Transmission Date: 20101027
  Serious: Yes (Other)
  Sender: FDA-Public Use
  Company Number: US-PFIZER INC-2010065709

PATIENT
  Sex: Female
  Weight: 74.83 kg

DRUGS (6)
  1. GEODON [Suspect]
     Dosage: 160 MG DAILY
     Dates: start: 20100201
  2. LYRICA [Concomitant]
     Dosage: UNK
  3. CELEBREX [Concomitant]
     Dosage: UNK
  4. DEPAKOTE [Concomitant]
     Dosage: UNK
  5. VITAMIN D [Concomitant]
     Dosage: UNK
  6. KLONOPIN [Concomitant]
     Dosage: UNK

REACTIONS (3)
  - COMA [None]
  - DEPRESSION [None]
  - PARALYSIS [None]
